FAERS Safety Report 9206501 (Version 4)
Quarter: 2014Q2

REPORT INFORMATION
  Report Type: Spontaneous
  Country: CH (occurrence: CH)
  Receive Date: 20130403
  Receipt Date: 20140404
  Transmission Date: 20141212
  Serious: Yes (Life-Threatening, Hospitalization, Other)
  Sender: FDA-Public Use
  Company Number: PHHY2013CH032212

PATIENT
  Age: 49 Year
  Sex: Female

DRUGS (5)
  1. GILENYA [Suspect]
     Indication: RELAPSING-REMITTING MULTIPLE SCLEROSIS
     Route: 048
     Dates: start: 20120918, end: 20130305
  2. GILENYA [Suspect]
     Dosage: UNK
     Route: 048
  3. CIPRALEX                                /DEN/ [Concomitant]
     Dosage: 10 MG, UNK
  4. FOLIC ACID [Concomitant]
     Dosage: 5 MG, QW
  5. SERETIDE DISCUS [Concomitant]
     Dosage: 500 UG, QD

REACTIONS (10)
  - Asthmatic crisis [Recovered/Resolved]
  - Respiratory distress [Unknown]
  - Dyspnoea [Unknown]
  - Wheezing [Unknown]
  - Muscle spasms [Unknown]
  - Cough [Unknown]
  - Sneezing [Unknown]
  - Oxygen saturation decreased [Unknown]
  - White blood cell count decreased [Unknown]
  - Lymphocyte count decreased [Unknown]
